FAERS Safety Report 6603168-1 (Version None)
Quarter: 2010Q1

REPORT INFORMATION
  Report Type: 
  Country: None (occurrence: None)
  Receive Date: 20100226
  Receipt Date: 20100214
  Transmission Date: 20100710
  Serious: Yes (Other)
  Sender: FDA-Public Use
  Company Number: PHHY2010BE09239

PATIENT
  Sex: Male

DRUGS (6)
  1. LAMISIL [Suspect]
     Indication: ONYCHOMYCOSIS
     Dosage: 250 MG DAILY
     Route: 048
     Dates: start: 20091118, end: 20091201
  2. CORDARONE [Interacting]
     Dosage: UNK
     Dates: end: 20091201
  3. PRAVASTATIN [Concomitant]
  4. SULAR [Concomitant]
  5. ASAFLOW [Concomitant]
  6. OLMETEC [Concomitant]

REACTIONS (4)
  - BRADYCARDIA [None]
  - DRUG INTERACTION [None]
  - ELECTROCARDIOGRAM QT PROLONGED [None]
  - SYNCOPE [None]
